FAERS Safety Report 13148630 (Version 5)
Quarter: 2017Q3

REPORT INFORMATION
  Report Type: Spontaneous
  Country: US (occurrence: US)
  Receive Date: 20170125
  Receipt Date: 20170705
  Transmission Date: 20171127
  Serious: No
  Sender: FDA-Public Use
  Company Number: US-PFIZER INC-2017029863

PATIENT
  Age: 57 Year
  Sex: Female
  Weight: 56.69 kg

DRUGS (2)
  1. IBRANCE [Suspect]
     Active Substance: PALBOCICLIB
     Indication: BREAST CANCER
     Dosage: 100 MG, CYCLIC (TAKE 1 CAPSULE DAILY FOR 21 DAYS AND 7 DAYS OFF)
     Route: 048
     Dates: start: 20160524
  2. LETROZOLE. [Suspect]
     Active Substance: LETROZOLE
     Indication: BREAST CANCER
     Dosage: 2.5 MG, 1X/DAY
     Dates: start: 20160524

REACTIONS (5)
  - Madarosis [Not Recovered/Not Resolved]
  - Stomatitis [Not Recovered/Not Resolved]
  - Sensation of foreign body [Not Recovered/Not Resolved]
  - Lacrimation increased [Recovered/Resolved]
  - Incision site erythema [Recovered/Resolved]
